FAERS Safety Report 5926790-4 (Version None)
Quarter: 2008Q4

REPORT INFORMATION
  Report Type: 
  Country: None (occurrence: None)
  Receive Date: 20081022
  Receipt Date: 20081016
  Transmission Date: 20090506
  Serious: Yes (Other)
  Sender: FDA-Public Use
  Company Number: GB-MERCK-0810GBR00080

PATIENT
  Sex: Male

DRUGS (8)
  1. PROSCAR [Suspect]
     Route: 048
     Dates: start: 20081014
  2. ASPIRIN [Concomitant]
     Route: 065
  3. GLICLAZIDE [Concomitant]
     Route: 065
  4. RAMIPRIL [Concomitant]
     Route: 065
  5. METFORMIN [Concomitant]
     Route: 065
  6. OMEPRAZOLE [Concomitant]
     Route: 065
  7. CIPROFLOXACIN [Concomitant]
     Route: 065
  8. ALFUZOSIN HYDROCHLORIDE [Concomitant]
     Route: 065

REACTIONS (4)
  - DEPRESSION [None]
  - HOMICIDAL IDEATION [None]
  - INSOMNIA [None]
  - SUICIDAL IDEATION [None]
